FAERS Safety Report 16776558 (Version 2)
Quarter: 2019Q3

REPORT INFORMATION
  Report Type: Spontaneous
  Country: US (occurrence: US)
  Receive Date: 20190905
  Receipt Date: 20190917
  Transmission Date: 20191005
  Serious: Yes (Other)
  Sender: FDA-Public Use
  Company Number: US-PFIZER INC-2019375785

PATIENT

DRUGS (4)
  1. SUCCINYLCHOLINE CHLORIDE. [Suspect]
     Active Substance: SUCCINYLCHOLINE CHLORIDE
     Dosage: 60 MG, UNK
     Route: 064
  2. ATROPINE. [Concomitant]
     Active Substance: ATROPINE
     Indication: ANAESTHESIA
     Dosage: 0.5 MG, UNK
     Route: 064
  3. SUCCINYLCHOLINE CHLORIDE. [Suspect]
     Active Substance: SUCCINYLCHOLINE CHLORIDE
     Indication: ANAESTHESIA
     Dosage: 80 MG, UNK
     Route: 064
  4. THIOPENTAL SODIUM. [Concomitant]
     Active Substance: THIOPENTAL SODIUM
     Indication: ANAESTHESIA
     Dosage: 150 MG, UNK
     Route: 064

REACTIONS (7)
  - Hypoventilation neonatal [Unknown]
  - Hypotonia neonatal [Unknown]
  - Muscular weakness [Unknown]
  - Respiratory depth decreased [Unknown]
  - Reflexes abnormal [Unknown]
  - Blood cholinesterase abnormal [Unknown]
  - Maternal exposure during delivery [Unknown]
